FAERS Safety Report 7691143-8 (Version None)
Quarter: 2011Q3

REPORT INFORMATION
  Report Type: 
  Country: None (occurrence: None)
  Receive Date: 20110815
  Receipt Date: 20110801
  Transmission Date: 20111222
  Serious: Yes (Hospitalization)
  Sender: FDA-Public Use
  Company Number: TCI2011A04288

PATIENT
  Age: 74 Year
  Sex: Male

DRUGS (1)
  1. ACTOS [Suspect]
     Indication: TYPE 2 DIABETES MELLITUS
     Dosage: 15 MG (15 MG,1 D)
     Route: 048
     Dates: start: 20060801, end: 20110601

REACTIONS (1)
  - BLADDER CANCER [None]
